FAERS Safety Report 10788515 (Version 2)
Quarter: 2015Q1

REPORT INFORMATION
  Report Type: Report from Study
  Country: GB (occurrence: GB)
  Receive Date: 20150212
  Receipt Date: 20150212
  Transmission Date: 20150721
  Serious: Yes (Hospitalization, Other)
  Sender: FDA-Public Use
  Company Number: GB-NWEHEALTH-NWEH518

PATIENT

DRUGS (7)
  1. SALBUTAMOL [Concomitant]
     Active Substance: ALBUTEROL
     Dosage: 2 PUFF 4XWK
     Route: 055
     Dates: start: 20140108
  2. BECLOMETHASONE DIPROPIONATE [Suspect]
     Active Substance: BECLOMETHASONE DIPROPIONATE
     Indication: CHRONIC OBSTRUCTIVE PULMONARY DISEASE
     Dosage: 100 UG, BID
     Route: 055
     Dates: start: 20130516
  3. SEREVENT (SALMETEROL) [Concomitant]
     Dosage: 50 004 BID
     Route: 055
     Dates: start: 20130207, end: 20140515
  4. SALMETEROL XINAFOATE [Suspect]
     Active Substance: SALMETEROL XINAFOATE
     Indication: CHRONIC OBSTRUCTIVE PULMONARY DISEASE
     Dosage: 50 UG, BID
     Route: 055
     Dates: start: 20130516
  5. QVAR (BECLOMETASONE) [Concomitant]
     Indication: CHRONIC OBSTRUCTIVE PULMONARY DISEASE
     Dosage: 100 UG, BID
     Route: 055
     Dates: start: 20121205, end: 20130515
  6. SALBUTAMOL [Concomitant]
     Active Substance: ALBUTEROL
     Indication: CHRONIC OBSTRUCTIVE PULMONARY DISEASE
     Dosage: 2 PUFF 4XWK
     Route: 055
     Dates: start: 20130923
  7. SEREVENT (SALMETEROL) [Concomitant]
     Indication: CHRONIC OBSTRUCTIVE PULMONARY DISEASE
     Dosage: 50 UG, BID
     Route: 055
     Dates: end: 20140515

REACTIONS (2)
  - Pericardial effusion [Recovered/Resolved]
  - Haematuria [Recovered/Resolved]

NARRATIVE: CASE EVENT DATE: 20130707
